FAERS Safety Report 6577865-0 (Version None)
Quarter: 2010Q1

REPORT INFORMATION
  Report Type: 
  Country: None (occurrence: None)
  Receive Date: 20100211
  Receipt Date: 20100129
  Transmission Date: 20100710
  Serious: Yes (Other)
  Sender: FDA-Public Use
  Company Number: GB-GILEAD-2006-0009412

PATIENT
  Age: 24 Year
  Sex: Female

DRUGS (5)
  1. VIREAD [Suspect]
     Indication: HIV INFECTION
     Route: 048
  2. REYATAZ [Suspect]
     Indication: HIV INFECTION
  3. RITONAVIR [Suspect]
     Indication: HIV INFECTION
  4. LAMIVUDINE [Concomitant]
     Indication: HIV INFECTION
  5. NEVIRAPINE [Concomitant]
     Indication: HIV INFECTION

REACTIONS (4)
  - BLOOD BILIRUBIN INCREASED [None]
  - HYPERBILIRUBINAEMIA [None]
  - JAUNDICE [None]
  - PREGNANCY [None]
